FAERS Safety Report 17012473 (Version 1)
Quarter: 2019Q4

REPORT INFORMATION
  Report Type: Report from Study
  Country: US (occurrence: US)
  Receive Date: 20191108
  Receipt Date: 20191108
  Transmission Date: 20200122
  Serious: Yes (Life-Threatening, Hospitalization)
  Sender: FDA-Public Use
  Company Number: US-ROCHE-1721051

PATIENT
  Sex: Female

DRUGS (4)
  1. LEVOPHED [Concomitant]
     Active Substance: NOREPINEPHRINE BITARTRATE
  2. EPINEPHRINE. [Concomitant]
     Active Substance: EPINEPHRINE
  3. VASOPRESSIN. [Concomitant]
     Active Substance: VASOPRESSIN
  4. RITUXIMAB. [Suspect]
     Active Substance: RITUXIMAB
     Indication: MYASTHENIA GRAVIS
     Dosage: RECEIVED INTRAVENOUS RITUXIMAB INFUSION 375 MG/M2 WEEKLY CONSECUTIVELY FOR FOUR WEEKS AND THEN REPEA
     Route: 041

REACTIONS (4)
  - Myasthenia gravis [Recovered/Resolved]
  - Septic shock [Recovered/Resolved]
  - Vascular pseudoaneurysm [Recovered/Resolved]
  - Thrombosis [Recovered/Resolved]

NARRATIVE: CASE EVENT DATE: 20160125
